FAERS Safety Report 7438273-3 (Version None)
Quarter: 2011Q2

REPORT INFORMATION
  Report Type: 
  Country: None (occurrence: None)
  Receive Date: 20110426
  Receipt Date: 20110120
  Transmission Date: 20111010
  Serious: Yes (Hospitalization, Other)
  Sender: FDA-Public Use
  Company Number: US-BAYER-201038991NA

PATIENT
  Age: 29 Year
  Sex: Female
  Weight: 106.12 kg

DRUGS (6)
  1. RAMIPRIL [Concomitant]
     Dosage: 5 MG, UNK
  2. HYDROCHLOROTHIAZDE TAB [Concomitant]
     Dosage: 25 MG, UNK
     Route: 048
  3. METFORMIN [Concomitant]
     Dosage: 500 MG, UNK
  4. YASMIN [Suspect]
     Indication: PRODUCT USED FOR UNKNOWN INDICATION
  5. METFORMIN [Concomitant]
     Dosage: 850 UNK, UNK
  6. YAZ [Suspect]
     Indication: PRODUCT USED FOR UNKNOWN INDICATION

REACTIONS (4)
  - GALLBLADDER DISORDER [None]
  - ALOPECIA AREATA [None]
  - CHOLECYSTITIS [None]
  - ALOPECIA [None]
